FAERS Safety Report 5491682-4 (Version None)
Quarter: 2007Q4

REPORT INFORMATION
  Report Type: 
  Country: None (occurrence: None)
  Receive Date: 20071018
  Receipt Date: 20071018
  Transmission Date: 20080405
  Serious: Yes (Hospitalization)
  Sender: FDA-Public Use
  Company Number: None

PATIENT
  Age: 50 Year
  Sex: Female
  Weight: 58.5 kg

DRUGS (5)
  1. LINEZOLID [Suspect]
     Indication: ENTEROCOCCAL INFECTION
     Dosage: 600MG, 14 DAYS BID, PO
     Route: 048
     Dates: start: 20070815, end: 20070901
  2. LINEZOLID [Suspect]
     Indication: URINARY TRACT INFECTION
     Dosage: 600MG, 14 DAYS BID, PO
     Route: 048
     Dates: start: 20070815, end: 20070901
  3. BACLOFEN [Concomitant]
  4. FUROSEMIDE [Concomitant]
  5. BETASERON [Concomitant]

REACTIONS (2)
  - CLOSTRIDIUM DIFFICILE TOXIN TEST POSITIVE [None]
  - COLITIS [None]
